FAERS Safety Report 9245266 (Version 1)
Quarter: 2013Q1

REPORT INFORMATION
  Report Type: Spontaneous
  Country: US (occurrence: None)
  Receive Date: 20121130
  Receipt Date: 20121130
  Transmission Date: 20140127
  Serious: Yes (Hospitalization)
  Sender: FDA-Public Use
  Company Number: US201209007994

PATIENT
  Age: 70 Year
  Sex: Female
  Weight: 99.79 kg

DRUGS (3)
  1. BYETTA [Suspect]
     Dosage: 5 UG, BID, SUBCUTANEOUS
     Route: 058
     Dates: start: 20120828
  2. LEVEMIR (INSULIN  DETEMIR) [Concomitant]
  3. HUMALOG (INSULIN LISPRO) [Concomitant]

REACTIONS (7)
  - Abdominal pain upper [None]
  - Ovarian cyst [None]
  - Nausea [None]
  - Vomiting [None]
  - Diarrhoea [None]
  - Abdominal discomfort [None]
  - Off label use [None]
